FAERS Safety Report 9769067 (Version 1)
Quarter: 2013Q4

REPORT INFORMATION
  Report Type: Report from Study
  Country: US (occurrence: US)
  Receive Date: 20131218
  Receipt Date: 20131218
  Transmission Date: 20140711
  Serious: Yes (Hospitalization)
  Sender: FDA-Public Use
  Company Number: US-JNJFOC-20131206414

PATIENT
  Sex: Female
  Weight: 104.33 kg

DRUGS (6)
  1. REMICADE [Suspect]
     Indication: RHEUMATOID ARTHRITIS
     Route: 042
  2. REMICADE [Suspect]
     Indication: RHEUMATOID ARTHRITIS
     Route: 042
     Dates: end: 2012
  3. REMICADE [Suspect]
     Indication: RHEUMATOID ARTHRITIS
     Route: 042
     Dates: start: 2013, end: 201311
  4. SULFASALAZINE [Concomitant]
     Indication: RHEUMATOID ARTHRITIS
     Route: 048
  5. METHOTREXATE [Concomitant]
     Indication: RHEUMATOID ARTHRITIS
     Route: 048
  6. CELEBREX [Concomitant]
     Indication: RHEUMATOID ARTHRITIS
     Route: 048

REACTIONS (3)
  - Osteoarthritis [Not Recovered/Not Resolved]
  - Arthropathy [Unknown]
  - Hypokinesia [Not Recovered/Not Resolved]
